FAERS Safety Report 19609810 (Version 1)
Quarter: 2021Q3

REPORT INFORMATION
  Report Type: Report from Study
  Country: AE (occurrence: AE)
  Receive Date: 20210726
  Receipt Date: 20210726
  Transmission Date: 20211014
  Serious: Yes (Congenital Anomaly)
  Sender: FDA-Public Use
  Company Number: AE-MYLANLABS-2021M1045281

PATIENT

DRUGS (3)
  1. FOLIC ACID. [Suspect]
     Active Substance: FOLIC ACID
     Indication: PRODUCT USED FOR UNKNOWN INDICATION
     Dosage: UNK
     Route: 064
  2. LEVETIRACETAM. [Suspect]
     Active Substance: LEVETIRACETAM
     Indication: DRUG THERAPY
     Dosage: UNK
     Route: 064
  3. VALPROIC ACID. [Suspect]
     Active Substance: VALPROIC ACID
     Indication: DRUG THERAPY
     Dosage: UNK
     Route: 064

REACTIONS (2)
  - Hernia congenital [Unknown]
  - Foetal exposure during pregnancy [Unknown]
